FAERS Safety Report 10019135 (Version 3)
Quarter: 2017Q1

REPORT INFORMATION
  Report Type: Spontaneous
  Country: US (occurrence: US)
  Receive Date: 20140318
  Receipt Date: 20170109
  Transmission Date: 20170428
  Serious: No
  Sender: FDA-Public Use
  Company Number: US-PFIZER INC-2014074922

PATIENT
  Age: 87 Year
  Sex: Female

DRUGS (20)
  1. NORVASC [Concomitant]
     Active Substance: AMLODIPINE BESYLATE
     Dosage: 2.5 MG, DAILY
  2. CARTIA XT [Concomitant]
     Active Substance: DILTIAZEM HYDROCHLORIDE
     Dosage: 180 MG, DAILY (ONCE DAILY)
     Route: 048
  3. HYDROCHLOROTHIAZIDE. [Concomitant]
     Active Substance: HYDROCHLOROTHIAZIDE
     Dosage: 25 MG, DAILY
     Route: 048
  4. DESYREL [Concomitant]
     Active Substance: TRAZODONE HYDROCHLORIDE
     Dosage: UNK, DAILY (0.5-1 TABLET (25-50 MG) BY MOUTH DAILY AT BEDTIME.)
     Route: 048
  5. GLUCOTROL [Concomitant]
     Active Substance: GLIPIZIDE
     Dosage: 10 MG, 2X/DAY, WITH MEALS
     Route: 048
  6. TRADJENTA [Concomitant]
     Active Substance: LINAGLIPTIN
     Dosage: 5 MG, DAILY
     Route: 048
  7. CENTRUM SILVER [Concomitant]
     Active Substance: MINERALS\VITAMINS
     Dosage: UNK UNK, DAILY (8 MG IRON 400 MCG 300 MCG TABLET)
     Route: 048
  8. TOPICORT [Concomitant]
     Active Substance: DESOXIMETASONE
     Dosage: UNK UNK, AS NEEDED, APPLY TO AFFECTED AREA 2 TIMES DAILY
     Route: 061
  9. MOBIC [Concomitant]
     Active Substance: MELOXICAM
     Dosage: 15 MG, DAILY
     Route: 048
  10. BETAGAN [Concomitant]
     Active Substance: LEVOBUNOLOL HYDROCHLORIDE
     Dosage: UNK, DAILY (ONE DROP INTO EACH EYE ONCE DAILY.)
     Route: 047
  11. NORCO [Concomitant]
     Active Substance: ACETAMINOPHEN\HYDROCODONE BITARTRATE
     Indication: PAIN
     Dosage: UNK, AS NEEDED [HYDROCODONE BITARTRATE: 10 MG]/[PARACETAMOL: 325 MG], 1-2 TABLET, EVERY 4-6 HOURS
     Route: 048
  12. COZAAR [Concomitant]
     Active Substance: LOSARTAN POTASSIUM
     Dosage: 100 MG, DAILY (ONCE DAILY)
     Route: 048
  13. XANAX [Concomitant]
     Active Substance: ALPRAZOLAM
     Dosage: UNK
  14. AROMASIN [Suspect]
     Active Substance: EXEMESTANE
     Indication: BREAST CANCER
     Dosage: 25 MG, 1X/DAY
     Dates: start: 20140224
  15. AROMASIN [Suspect]
     Active Substance: EXEMESTANE
     Indication: INVASIVE DUCTAL BREAST CARCINOMA
     Dosage: 25 MG, DAILY (AFTER BREAKFAST)
     Route: 048
     Dates: start: 20161103
  16. LIPITOR [Concomitant]
     Active Substance: ATORVASTATIN CALCIUM
     Dosage: 20 MG, DAILY (LATE)
     Route: 048
  17. BAYER ASPIRIN [Concomitant]
     Active Substance: ASPIRIN
     Dosage: 325 MG, DAILY
     Route: 048
  18. AROMASIN [Suspect]
     Active Substance: EXEMESTANE
     Dosage: UNK, DAILY (2 TABLETS EVERY MORNING)
  19. LOSARTAN. [Concomitant]
     Active Substance: LOSARTAN
     Dosage: 100 MG, UNK
  20. ZANTAC [Concomitant]
     Active Substance: RANITIDINE HYDROCHLORIDE
     Dosage: 150 MG, 2X/DAY
     Route: 048

REACTIONS (1)
  - Abdominal pain upper [Unknown]
